FAERS Safety Report 9442419 (Version 1)
Quarter: 2013Q3

REPORT INFORMATION
  Report Type: Spontaneous
  Country: US (occurrence: US)
  Receive Date: 20130806
  Receipt Date: 20130806
  Transmission Date: 20140515
  Serious: No
  Sender: FDA-Public Use
  Company Number: US-GLAXOSMITHKLINE-A1023559A

PATIENT
  Age: 9 Year
  Sex: Male

DRUGS (3)
  1. ADVAIR [Suspect]
     Indication: ASTHMA
     Dosage: 2PUFF TWICE PER DAY
     Route: 055
     Dates: start: 201105
  2. SINGULAIR [Concomitant]
  3. XOPENEX [Concomitant]

REACTIONS (4)
  - Asthma [Unknown]
  - Inhalation therapy [Unknown]
  - Dyspnoea [Unknown]
  - Product quality issue [Unknown]
